FAERS Safety Report 8158630-X (Version None)
Quarter: 2012Q1

REPORT INFORMATION
  Report Type: 
  Country: None (occurrence: None)
  Receive Date: 20120223
  Receipt Date: 20120215
  Transmission Date: 20120608
  Serious: Yes (Hospitalization)
  Sender: FDA-Public Use
  Company Number: US-BAYER-2012-015446

PATIENT
  Age: 29 Year
  Sex: Female
  Weight: 86.168 kg

DRUGS (8)
  1. YAZ [Suspect]
     Indication: CONTRACEPTION
     Dosage: UNK
     Dates: start: 20080201, end: 20081101
  2. ZITHROMAX [Concomitant]
     Dosage: 250 MG, BID
  3. VICODIN [Concomitant]
     Dosage: UNK UNK, PRN
     Route: 048
  4. MEDROL [Concomitant]
     Dosage: 4 MG, UNK
     Route: 048
  5. ADVAIR DISKUS 100/50 [Concomitant]
     Dosage: UNK UNK, BID
  6. DROSPIRENONE AND ETHINYL ESTRADIOL [Suspect]
     Indication: CONTRACEPTION
     Dosage: UNK
     Dates: start: 20081101, end: 20091201
  7. ZITHROMAX [Concomitant]
     Dosage: 250 MG, QD
  8. MUCINEX DM [Concomitant]
     Dosage: UNK UNK, BID

REACTIONS (6)
  - NERVOUSNESS [None]
  - EMOTIONAL DISTRESS [None]
  - DEEP VEIN THROMBOSIS [None]
  - PULMONARY EMBOLISM [None]
  - FEAR OF DEATH [None]
  - DEPRESSION [None]
